FAERS Safety Report 17723472 (Version 6)
Quarter: 2020Q4

REPORT INFORMATION
  Report Type: Report from Study
  Country: FR (occurrence: FR)
  Receive Date: 20200429
  Receipt Date: 20201113
  Transmission Date: 20210113
  Serious: Yes (Hospitalization)
  Sender: FDA-Public Use
  Company Number: FR-CELGENEUS-FRA-20200408216

PATIENT
  Age: 59 Year
  Sex: Male
  Weight: 64 kg

DRUGS (15)
  1. ISTODAX [Suspect]
     Active Substance: ROMIDEPSIN
     Dosage: 14 MILLIGRAM/SQ. METER (25MG/DOSE)METER
     Route: 041
     Dates: start: 20200106
  2. BARACLUDE [Suspect]
     Active Substance: ENTECAVIR
     Dosage: 0.5 MG
     Route: 065
     Dates: start: 20200630
  3. DOCOSAHEXAENOIC ACID [Concomitant]
     Active Substance: DOCONEXENT
     Indication: PRODUCT USED FOR UNKNOWN INDICATION
     Route: 065
     Dates: start: 20190826, end: 201910
  4. WELLVONE [Concomitant]
     Active Substance: ATOVAQUONE
     Indication: PRODUCT USED FOR UNKNOWN INDICATION
     Dosage: 1500 MILLIGRAM
     Route: 065
  5. ISTODAX [Suspect]
     Active Substance: ROMIDEPSIN
     Dosage: 14 MILLIGRAM/SQ. METER (25MG/DOSE)
     Route: 041
     Dates: start: 20191230
  6. ZELITREX [Concomitant]
     Active Substance: VALACYCLOVIR HYDROCHLORIDE
     Indication: PRODUCT USED FOR UNKNOWN INDICATION
     Dosage: 500 MG
     Route: 065
  7. ISTODAX [Suspect]
     Active Substance: ROMIDEPSIN
     Dosage: 14 MILLIGRAM/SQ. METER (25MG/DOSE)
     Route: 041
     Dates: start: 20191128
  8. BARACLUDE [Suspect]
     Active Substance: ENTECAVIR
     Indication: HEPATITIS B
     Dosage: 0.5 MG
     Route: 065
     Dates: end: 20200326
  9. ISTODAX [Suspect]
     Active Substance: ROMIDEPSIN
     Dosage: 14 MILLIGRAM/SQ. METER (25MG/DOSE)
     Route: 041
     Dates: start: 20191206
  10. ISTODAX [Suspect]
     Active Substance: ROMIDEPSIN
     Dosage: 14 MILLIGRAM/SQ. METER
     Route: 041
     Dates: start: 20191216
  11. ISTODAX [Suspect]
     Active Substance: ROMIDEPSIN
     Dosage: 14 MILLIGRAM/SQ. METER (25MG/DOSE)
     Route: 041
     Dates: start: 20200117
  12. ISTODAX [Suspect]
     Active Substance: ROMIDEPSIN
     Indication: PERIPHERAL T-CELL LYMPHOMA UNSPECIFIED
     Dosage: 14 MILLIGRAM/SQ. METER (25MG/DOSE)
     Route: 041
     Dates: start: 20190612
  13. ISTODAX [Suspect]
     Active Substance: ROMIDEPSIN
     Dosage: 14 MILLIGRAM/SQ. METER (25MG/DOSE)
     Route: 041
     Dates: start: 20200128
  14. ISTODAX [Suspect]
     Active Substance: ROMIDEPSIN
     Dosage: 14 MILLIGRAM/SQ. METER (25MG/DOSE)
     Route: 041
     Dates: start: 20200218, end: 20200218
  15. BENDAMUSTINE [Concomitant]
     Active Substance: BENDAMUSTINE
     Indication: PERIPHERAL T-CELL LYMPHOMA UNSPECIFIED
     Route: 065
     Dates: end: 20200209

REACTIONS (4)
  - COVID-19 [Recovered/Resolved]
  - Hepatocellular injury [Recovered/Resolved]
  - Peripheral T-cell lymphoma unspecified [Not Recovered/Not Resolved]
  - Acute kidney injury [Recovered/Resolved]

NARRATIVE: CASE EVENT DATE: 20200217
